FAERS Safety Report 20417500 (Version 3)
Quarter: 2022Q2

REPORT INFORMATION
  Report Type: Spontaneous
  Country: CA (occurrence: CA)
  Receive Date: 20220202
  Receipt Date: 20220509
  Transmission Date: 20220721
  Serious: Yes (Other)
  Sender: FDA-Public Use
  Company Number: CA-PFIZER INC-202100968377

PATIENT
  Age: 61 Year
  Sex: Male
  Weight: 126 kg

DRUGS (3)
  1. RUXIENCE [Suspect]
     Active Substance: RITUXIMAB-PVVR
     Indication: Rheumatoid arthritis
     Dosage: 1000 MG DAY 1 AND DAY 15
     Route: 042
     Dates: start: 20210723, end: 20210805
  2. RUXIENCE [Suspect]
     Active Substance: RITUXIMAB-PVVR
     Dosage: 1000 MG DAY 1 AND DAY 15
     Route: 042
     Dates: start: 20220121, end: 20220204
  3. RUXIENCE [Suspect]
     Active Substance: RITUXIMAB-PVVR
     Dosage: 1000 MG DAY 1 AND DAY 15
     Route: 042
     Dates: start: 20220204

REACTIONS (5)
  - Pruritus [Recovered/Resolved]
  - Erythema [Recovered/Resolved]
  - Rash [Recovered/Resolved]
  - Off label use [Unknown]
  - Intentional product use issue [Unknown]

NARRATIVE: CASE EVENT DATE: 20210723
